FAERS Safety Report 24606011 (Version 2)
Quarter: 2024Q4

REPORT INFORMATION
  Report Type: Report from Study
  Country: US (occurrence: US)
  Receive Date: 20241111
  Receipt Date: 20241127
  Transmission Date: 20250114
  Serious: Yes (Other)
  Sender: ABBVIE
  Company Number: US-ABBVIE-5987549

PATIENT
  Age: 72 Year
  Sex: Female

DRUGS (1)
  1. SKYRIZI [Suspect]
     Active Substance: RISANKIZUMAB-RZAA
     Indication: Crohn^s disease
     Route: 042
     Dates: start: 20240923

REACTIONS (9)
  - Loss of consciousness [Recovered/Resolved]
  - Narcolepsy [Unknown]
  - Headache [Recovered/Resolved]
  - Blood pressure increased [Unknown]
  - Abdominal distension [Unknown]
  - Hypophagia [Unknown]
  - Gastrooesophageal reflux disease [Unknown]
  - Constipation [Unknown]
  - Hunger [Unknown]

NARRATIVE: CASE EVENT DATE: 20240101
